FAERS Safety Report 17682914 (Version 1)
Quarter: 2020Q2

REPORT INFORMATION
  Report Type: Other
  Country: IT (occurrence: IT)
  Receive Date: 20200420
  Receipt Date: 20200420
  Transmission Date: 20200714
  Serious: Yes (Other)
  Sender: FDA-Public Use
  Company Number: IT-CELLTRION INC.-2020IT021611

PATIENT

DRUGS (6)
  1. DECADRON [Concomitant]
     Active Substance: DEXAMETHASONE
     Indication: ANTIINFLAMMATORY THERAPY
     Dosage: (4MG/ML),  4 MG, AS NECESSARY
     Route: 042
  2. RAMATES [Concomitant]
     Indication: BREAST NEOPLASM
     Dosage: 2.5 MG, QD
     Route: 048
     Dates: start: 20130403
  3. PERJETA [Suspect]
     Active Substance: PERTUZUMAB
     Indication: BREAST NEOPLASM
     Dosage: 420 MG, CYCLIC
     Route: 041
     Dates: start: 20160321
  4. TRASTUZUMAB (UNKNOWN) [Suspect]
     Active Substance: TRASTUZUMAB
     Indication: BREAST NEOPLASM
     Dosage: 420 MG, CYCLIC
     Route: 041
     Dates: start: 20190701, end: 20190722
  5. PANTORC [Concomitant]
     Active Substance: PANTOPRAZOLE SODIUM
     Indication: HYPERCHLORHYDRIA
     Dosage: 40 MG, AS NECESSARY
     Route: 042
  6. TRIMETON [Concomitant]
     Active Substance: CHLORPHENIRAMINE MALEATE
     Indication: ANTIALLERGIC THERAPY
     Dosage: (10MG/ML) 10 MG, AS NECESSARY
     Route: 050

REACTIONS (3)
  - Oedema mucosal [Recovered/Resolved]
  - Dysphagia [Recovered/Resolved]
  - Pruritus [Recovered/Resolved]

NARRATIVE: CASE EVENT DATE: 20190722
